FAERS Safety Report 4297697-6 (Version None)
Quarter: 2004Q1

REPORT INFORMATION
  Report Type: 
  Country: None (occurrence: None)
  Receive Date: 20040217
  Receipt Date: 20040217
  Transmission Date: 20041129
  Serious: No
  Sender: FDA-Public Use
  Company Number: None

PATIENT
  Age: 21 Year
  Sex: Female

DRUGS (3)
  1. FERRLECIT [Suspect]
     Indication: ANAEMIA
     Dosage: 125 MG Q WEEK INTRAVENOUS
     Route: 042
     Dates: start: 20040127, end: 20040127
  2. ACETAMINOPHEN [Concomitant]
  3. DIPHENHYDRAMINE HCL [Concomitant]

REACTIONS (1)
  - ANAPHYLACTIC REACTION [None]
